FAERS Safety Report 7783097-0 (Version None)
Quarter: 2011Q3

REPORT INFORMATION
  Report Type: 
  Country: None (occurrence: None)
  Receive Date: 20110927
  Receipt Date: 20110927
  Transmission Date: 20111222
  Serious: Yes (Other)
  Sender: FDA-Public Use
  Company Number: None

PATIENT
  Age: 64 Year
  Sex: Male
  Weight: 118.9 kg

DRUGS (1)
  1. WARFARIN SODIUM [Suspect]
     Dates: start: 20110831

REACTIONS (1)
  - RETROPERITONEAL HAEMORRHAGE [None]
